FAERS Safety Report 10502116 (Version 2)
Quarter: 2014Q4

REPORT INFORMATION
  Report Type: Spontaneous
  Country: PT (occurrence: PT)
  Receive Date: 20141007
  Receipt Date: 20141126
  Transmission Date: 20150528
  Serious: Yes (Other)
  Sender: FDA-Public Use
  Company Number: PT-PFIZER INC-2014272399

PATIENT
  Age: 48 Year
  Sex: Female
  Weight: 61 kg

DRUGS (1)
  1. FELDENE [Suspect]
     Active Substance: PIROXICAM
     Indication: MESOTHERAPY
     Dosage: 20 MG, WEEKLY
     Route: 003
     Dates: start: 20140912, end: 20140912

REACTIONS (7)
  - Blister [Recovered/Resolved with Sequelae]
  - Generalised erythema [Recovered/Resolved with Sequelae]
  - Hot flush [Recovered/Resolved]
  - Hypersensitivity [Recovered/Resolved with Sequelae]
  - Pruritus generalised [Recovered/Resolved with Sequelae]
  - Acne [Recovered/Resolved with Sequelae]
  - Off label use [Recovered/Resolved with Sequelae]

NARRATIVE: CASE EVENT DATE: 20140912
